FAERS Safety Report 10189635 (Version 1)
Quarter: 2014Q2

REPORT INFORMATION
  Report Type: Spontaneous
  Country: FR (occurrence: FR)
  Receive Date: 20140522
  Receipt Date: 20140522
  Transmission Date: 20141212
  Serious: Yes (Hospitalization)
  Sender: FDA-Public Use
  Company Number: FR-GLAXOSMITHKLINE-B0995648A

PATIENT
  Age: 40 Year
  Sex: Male

DRUGS (1)
  1. IMIJECT [Suspect]
     Indication: PRODUCT USED FOR UNKNOWN INDICATION
     Dosage: 4UNIT PER DAY
     Route: 058
     Dates: start: 20140414, end: 20140415

REACTIONS (3)
  - Chest pain [Recovered/Resolved]
  - Sense of oppression [Recovered/Resolved]
  - Overdose [Unknown]
